FAERS Safety Report 10946731 (Version 1)
Quarter: 2015Q1

REPORT INFORMATION
  Report Type: Report from Study
  Country: DE (occurrence: DE)
  Receive Date: 20150323
  Receipt Date: 20150323
  Transmission Date: 20150721
  Serious: Yes (Other)
  Sender: FDA-Public Use
  Company Number: DE-RECKITT BENCKISER PHARMACEUTICAL, INC-RB-077224-2015

PATIENT
  Age: 54 Year
  Sex: Male

DRUGS (1)
  1. SUBUTEX [Suspect]
     Active Substance: BUPRENORPHINE HYDROCHLORIDE
     Indication: DRUG DEPENDENCE
     Dosage: 8 MG, UNKNOWN
     Route: 065
     Dates: start: 2008

REACTIONS (2)
  - Cerebrovascular accident [Unknown]
  - Myocardial infarction [Unknown]

NARRATIVE: CASE EVENT DATE: 20120207
